FAERS Safety Report 6373944-1 (Version None)
Quarter: 2009Q3

REPORT INFORMATION
  Report Type: 
  Country: None (occurrence: None)
  Receive Date: 20090924
  Receipt Date: 20090626
  Transmission Date: 20100115
  Serious: No
  Sender: FDA-Public Use
  Company Number: US-ASTRAZENECA-2009UW12467

PATIENT
  Age: 20544 Day
  Sex: Female
  Weight: 77.1 kg

DRUGS (6)
  1. SEROQUEL [Suspect]
     Indication: ANXIETY
     Route: 048
     Dates: start: 20050101, end: 20050101
  2. SEROQUEL [Suspect]
     Dosage: 50 MG, PRN
     Route: 048
  3. EFFEXOR [Concomitant]
  4. AXID [Concomitant]
  5. SYNTHROID [Concomitant]
  6. LORTAB [Concomitant]

REACTIONS (3)
  - ANXIETY [None]
  - MUSCLE TIGHTNESS [None]
  - MUSCULOSKELETAL STIFFNESS [None]
